FAERS Safety Report 10655387 (Version 1)
Quarter: 2014Q4

REPORT INFORMATION
  Report Type: Spontaneous
  Country: US (occurrence: None)
  Receive Date: 20141215
  Receipt Date: 20141215
  Transmission Date: 20150529
  Serious: Yes (Other)
  Sender: FDA-Public Use
  Company Number: None

PATIENT
  Age: 36 Year
  Sex: Male
  Weight: 99.34 kg

DRUGS (1)
  1. GABAPENTIN. [Suspect]
     Active Substance: GABAPENTIN
     Indication: INSOMNIA
     Dosage: 1 PILL AT NIGHT
     Route: 048
     Dates: start: 20141107, end: 20141207

REACTIONS (1)
  - Dysphagia [None]

NARRATIVE: CASE EVENT DATE: 20141210
